FAERS Safety Report 22274228 (Version 1)
Quarter: 2023Q2

REPORT INFORMATION
  Report Type: Spontaneous
  Country: CN (occurrence: CN)
  Receive Date: 20230502
  Receipt Date: 20230502
  Transmission Date: 20230721
  Serious: No
  Sender: FDA-Public Use
  Company Number: CN-009507513-2304CHN009708

PATIENT
  Age: 42 Year
  Sex: Female
  Weight: 83.5 kg

DRUGS (3)
  1. STEGLATRO [Suspect]
     Active Substance: ERTUGLIFLOZIN PIDOLATE
     Indication: Diabetes mellitus
     Dosage: 5MG, QD
     Route: 048
     Dates: start: 20230325, end: 20230328
  2. INSULIN NOS [Concomitant]
     Active Substance: INSULIN NOS
     Dosage: UNK
  3. SEMAGLUTIDE [Concomitant]
     Active Substance: SEMAGLUTIDE
     Dosage: 0.5 MILLIGRAM, QW

REACTIONS (1)
  - Blood ketone body increased [Recovering/Resolving]

NARRATIVE: CASE EVENT DATE: 20230328
